FAERS Safety Report 20821513 (Version 7)
Quarter: 2023Q2

REPORT INFORMATION
  Report Type: Spontaneous
  Country: US (occurrence: US)
  Receive Date: 20220512
  Receipt Date: 20230526
  Transmission Date: 20230722
  Serious: Yes (Other)
  Sender: FDA-Public Use
  Company Number: US-PFIZER INC-202200328048

PATIENT
  Age: 82 Year
  Sex: Female

DRUGS (1)
  1. XELJANZ XR [Suspect]
     Active Substance: TOFACITINIB CITRATE
     Indication: Rheumatoid arthritis
     Dosage: 11 MG, 1X/DAY
     Route: 048
     Dates: start: 20210101, end: 2023

REACTIONS (10)
  - Squamous cell carcinoma of skin [Unknown]
  - Musculoskeletal discomfort [Unknown]
  - Memory impairment [Unknown]
  - Finger deformity [Unknown]
  - Skin lesion [Recovering/Resolving]
  - Impaired healing [Unknown]
  - Seasonal allergy [Unknown]
  - Condition aggravated [Unknown]
  - Dry skin [Unknown]
  - Product dose omission issue [Unknown]
